FAERS Safety Report 5149810-6 (Version None)
Quarter: 2006Q4

REPORT INFORMATION
  Report Type: 
  Country: None (occurrence: None)
  Receive Date: 20061113
  Receipt Date: 20060808
  Transmission Date: 20070319
  Serious: Yes (Death)
  Sender: FDA-Public Use
  Company Number: NO-ABBOTT-06P-122-0340678-00

PATIENT

DRUGS (1)
  1. VALPROATE SODIUM [Suspect]
     Indication: EPILEPSY
     Dosage: FOR 7 WEEKS

REACTIONS (2)
  - HEPATIC FUNCTION ABNORMAL [None]
  - STATUS EPILEPTICUS [None]
